FAERS Safety Report 7251896-X (Version None)
Quarter: 2011Q1

REPORT INFORMATION
  Report Type: 
  Country: None (occurrence: None)
  Receive Date: 20110128
  Receipt Date: 20100107
  Transmission Date: 20110831
  Serious: No
  Sender: FDA-Public Use
  Company Number: US-ABBOTT-10P-163-0618485-00

PATIENT
  Sex: Female
  Weight: 81.266 kg

DRUGS (4)
  1. ENTOCORT EC [Concomitant]
     Indication: CROHN'S DISEASE
     Dates: start: 20091229
  2. UNKNOWN BIRTH CONTROL [Concomitant]
     Indication: CONTRACEPTION
  3. PREVACID [Concomitant]
     Indication: PRODUCT USED FOR UNKNOWN INDICATION
     Route: 048
  4. HUMIRA [Suspect]
     Indication: CROHN'S DISEASE
     Route: 058
     Dates: start: 20091226, end: 20100107

REACTIONS (5)
  - INJECTION SITE PRURITUS [None]
  - RASH [None]
  - URTICARIA [None]
  - INJECTION SITE SWELLING [None]
  - INJECTION SITE ERYTHEMA [None]
